FAERS Safety Report 8174912-X (Version None)
Quarter: 2012Q1

REPORT INFORMATION
  Report Type: 
  Country: None (occurrence: None)
  Receive Date: 20120229
  Receipt Date: 20110713
  Transmission Date: 20120608
  Serious: No
  Sender: FDA-Public Use
  Company Number: US-GLAXOSMITHKLINE-A0936697A

PATIENT
  Sex: Female

DRUGS (1)
  1. VALTREX [Suspect]
     Indication: HERPES VIRUS INFECTION
     Dosage: 500MG TWICE PER DAY
     Route: 048
     Dates: start: 20110629, end: 20110711

REACTIONS (7)
  - GINGIVAL PAIN [None]
  - HYPERAESTHESIA [None]
  - PARAESTHESIA ORAL [None]
  - BURNING SENSATION [None]
  - TEMPERATURE INTOLERANCE [None]
  - GLOSSODYNIA [None]
  - THROAT IRRITATION [None]
